FAERS Safety Report 21362646 (Version 4)
Quarter: 2023Q1

REPORT INFORMATION
  Report Type: Spontaneous
  Country: US (occurrence: US)
  Receive Date: 20220922
  Receipt Date: 20230106
  Transmission Date: 20230418
  Serious: No
  Sender: FDA-Public Use
  Company Number: US-AMGEN-USASP2022161003

PATIENT
  Age: 77 Year
  Sex: Female
  Weight: 58.503 kg

DRUGS (13)
  1. EVENITY [Suspect]
     Active Substance: ROMOSOZUMAB-AQQG
     Indication: Osteoporosis prophylaxis
     Dosage: 210 MILLIGRAM, QMO
     Route: 058
     Dates: start: 20200414
  2. EVENITY [Suspect]
     Active Substance: ROMOSOZUMAB-AQQG
     Indication: Off label use
     Dosage: 210 MILLIGRAM, QMO
     Route: 058
     Dates: start: 20210426, end: 20210526
  3. PROLIA [Suspect]
     Active Substance: DENOSUMAB
     Indication: Osteoporosis prophylaxis
     Dosage: 60 MILLIGRAM
     Route: 058
     Dates: start: 20210628
  4. PROLIA [Suspect]
     Active Substance: DENOSUMAB
     Dosage: 60 MILLIGRAM
     Route: 058
     Dates: start: 20220103
  5. PROLIA [Suspect]
     Active Substance: DENOSUMAB
     Dosage: 60 MILLIGRAM
     Route: 058
     Dates: start: 20220711
  6. BACLOFEN [Concomitant]
     Active Substance: BACLOFEN
     Route: 065
  7. PANTOPRAZOLE [Concomitant]
     Active Substance: PANTOPRAZOLE
     Route: 065
  8. CLONAZEPAM [Concomitant]
     Active Substance: CLONAZEPAM
     Route: 065
  9. ACETAMINOPHEN\HYDROCODONE [Concomitant]
     Active Substance: ACETAMINOPHEN\HYDROCODONE
     Route: 065
  10. ALBUTEROL\IPRATROPIUM [Concomitant]
     Active Substance: ALBUTEROL\IPRATROPIUM
     Route: 065
  11. TUMS [Concomitant]
     Active Substance: CALCIUM CARBONATE
     Route: 065
  12. MAGNESIUM CARBONATE [Concomitant]
     Active Substance: MAGNESIUM CARBONATE
     Route: 065
  13. LIDOCAINE [Concomitant]
     Active Substance: LIDOCAINE
     Route: 065

REACTIONS (2)
  - Bone density decreased [Unknown]
  - Off label use [Unknown]

NARRATIVE: CASE EVENT DATE: 20200414
